FAERS Safety Report 4896783-7 (Version None)
Quarter: 2006Q1

REPORT INFORMATION
  Report Type: 
  Country: None (occurrence: None)
  Receive Date: 20060126
  Receipt Date: 20060113
  Transmission Date: 20060701
  Serious: Yes (Hospitalization)
  Sender: FDA-Public Use
  Company Number: 2005162837

PATIENT
  Age: 51 Year
  Sex: Male

DRUGS (6)
  1. LIPITOR [Suspect]
     Indication: ILL-DEFINED DISORDER
     Dosage: 5MG (1 D), ORAL
     Route: 048
     Dates: start: 20031009, end: 20031105
  2. TICLOPIDINE HCL [Suspect]
     Indication: ACUTE MYOCARDIAL INFARCTION
     Dosage: 200 MG (1 D ), ORAL
     Route: 048
     Dates: start: 20031009, end: 20031105
  3. ASPIRIN [Suspect]
     Indication: ACUTE MYOCARDIAL INFARCTION
     Dosage: 100 MG (1 D), ORAL
     Route: 048
     Dates: start: 20031009
  4. ZESTRIL [Suspect]
     Indication: ACUTE MYOCARDIAL INFARCTION
     Dosage: 5 MG (1 D), ORAL
     Route: 048
     Dates: start: 20031009, end: 20031105
  5. SIGMART (NICORANDIL) [Suspect]
     Indication: ACUTE MYOCARDIAL INFARCTION
     Dosage: 15 MG (1 D), ORAL
     Route: 048
     Dates: start: 20031019, end: 20031105
  6. FAMOTIDINE [Suspect]
     Indication: ACUTE MYOCARDIAL INFARCTION
     Dosage: 40 MG (1 D), ORAL
     Route: 048
     Dates: start: 20031009

REACTIONS (3)
  - JAUNDICE [None]
  - LIVER DISORDER [None]
  - PRURITUS GENERALISED [None]
